FAERS Safety Report 9204225 (Version 1)
Quarter: 2013Q2

REPORT INFORMATION
  Report Type: Spontaneous
  Country: US (occurrence: US)
  Receive Date: 20130402
  Receipt Date: 20130402
  Transmission Date: 20140414
  Serious: Yes (Death)
  Sender: FDA-Public Use
  Company Number: US-PFIZER INC-HQ4978531OCT2002

PATIENT
  Age: 71 Year
  Sex: Female

DRUGS (5)
  1. IBUPROFEN [Suspect]
     Dosage: 2-3 BOTTLES OVER THE LAST 2-3 DAYS
     Route: 048
  2. TYLENOL [Concomitant]
     Indication: PAIN
  3. FOSAMAX [Concomitant]
  4. PREMARIN [Concomitant]
  5. CELEBREX [Concomitant]
     Indication: PAIN
     Route: 048

REACTIONS (10)
  - Intentional overdose [Fatal]
  - Apnoea [Fatal]
  - Dehydration [Fatal]
  - Acidosis [Fatal]
  - Tachycardia [Fatal]
  - Hypoglycaemia [Fatal]
  - Hypotension [Fatal]
  - Leukocytosis [Fatal]
  - Cyanosis [Fatal]
  - Cachexia [Fatal]
